FAERS Safety Report 16931710 (Version 1)
Quarter: 2019Q4

REPORT INFORMATION
  Report Type: Spontaneous
  Country: GR (occurrence: GR)
  Receive Date: 20191017
  Receipt Date: 20191017
  Transmission Date: 20200122
  Serious: Yes (Death, Hospitalization)
  Sender: FDA-Public Use
  Company Number: GR-HONG KONG KING-FRIEND INDUSTRIAL COMPANY-2019NKF00021

PATIENT

DRUGS (3)
  1. DIMETHINDENE [Concomitant]
     Active Substance: DIMETHINDENE
     Dosage: 4 MG
     Route: 042
  2. GEMCITABINE. [Suspect]
     Active Substance: GEMCITABINE
     Indication: PANCREATIC CARCINOMA
     Dosage: 1000 MG/M2, 2X/MONTH
     Route: 042
  3. TEMSIROLIMUS. [Concomitant]
     Active Substance: TEMSIROLIMUS
     Indication: PANCREATIC CARCINOMA
     Dosage: 25 MG, 1X/WEEK
     Route: 042

REACTIONS (2)
  - Sepsis [Fatal]
  - Pulmonary toxicity [Not Recovered/Not Resolved]
